FAERS Safety Report 6820875-6 (Version None)
Quarter: 2010Q3

REPORT INFORMATION
  Report Type: 
  Country: None (occurrence: None)
  Receive Date: 20100707
  Receipt Date: 20070802
  Transmission Date: 20110219
  Serious: No
  Sender: FDA-Public Use
  Company Number: US-PFIZER INC-2007062346

PATIENT
  Sex: Female

DRUGS (3)
  1. ZOLOFT [Suspect]
     Indication: ANXIETY
     Dates: start: 20070501
  2. ZOLOFT [Suspect]
     Indication: DEPRESSION
  3. ATIVAN [Concomitant]

REACTIONS (1)
  - DEPRESSION [None]
